FAERS Safety Report 4974610-7 (Version None)
Quarter: 2006Q2

REPORT INFORMATION
  Report Type: 
  Country: None (occurrence: None)
  Receive Date: 20060410
  Receipt Date: 20060322
  Transmission Date: 20061013
  Serious: Yes (Hospitalization)
  Sender: FDA-Public Use
  Company Number: BR200603006067

PATIENT
  Age: 63 Year
  Sex: Female
  Weight: 57 kg

DRUGS (3)
  1. FORTEO [Suspect]
     Indication: OSTEOPOROSIS
     Dosage: 20 UG, DAILY (1/D), SUBCUTANEOUS
     Route: 058
     Dates: start: 20050919
  2. FORTEO [Concomitant]
  3. FLOXACIN (NORFLOXACIN) [Concomitant]

REACTIONS (3)
  - CALCULUS BLADDER [None]
  - DISEASE RECURRENCE [None]
  - NEPHROLITHIASIS [None]
